FAERS Safety Report 8015985-4 (Version None)
Quarter: 2011Q4

REPORT INFORMATION
  Report Type: 
  Country: None (occurrence: None)
  Receive Date: 20111230
  Receipt Date: 20111230
  Transmission Date: 20120403
  Serious: Yes (Other)
  Sender: FDA-Public Use
  Company Number: None

PATIENT
  Age: 35 Year
  Sex: Female
  Weight: 54.431 kg

DRUGS (2)
  1. HYDROXYZINE HCL [Suspect]
     Indication: SLEEP DISORDER THERAPY
     Dosage: 1 TO 2
     Route: 048
  2. HYDROXYZINE HCL [Suspect]
     Indication: ANXIETY
     Dosage: 1 TO 2
     Route: 048

REACTIONS (13)
  - DIARRHOEA [None]
  - DECREASED APPETITE [None]
  - WRONG DRUG ADMINISTERED [None]
  - DIZZINESS [None]
  - VOMITING [None]
  - INSOMNIA [None]
  - MALAISE [None]
  - DRUG DISPENSING ERROR [None]
  - ANXIETY [None]
  - MEDICATION ERROR [None]
  - PALLOR [None]
  - HEADACHE [None]
  - DISORIENTATION [None]
